FAERS Safety Report 17730136 (Version 1)
Quarter: 2020Q2

REPORT INFORMATION
  Report Type: Spontaneous
  Country: BG (occurrence: BG)
  Receive Date: 20200430
  Receipt Date: 20200430
  Transmission Date: 20200714
  Serious: Yes (Other)
  Sender: FDA-Public Use
  Company Number: BG-BAUSCH-BL-2020-011803

PATIENT
  Age: 32 Year
  Sex: Female

DRUGS (9)
  1. IMMUNOVENIN [Suspect]
     Active Substance: HUMAN IMMUNOGLOBULIN G
     Indication: SYSTEMIC LUPUS ERYTHEMATOSUS
     Route: 042
     Dates: start: 201611, end: 2016
  2. CYCLOPHOSPHAMIDE. [Suspect]
     Active Substance: CYCLOPHOSPHAMIDE
     Indication: SYSTEMIC LUPUS ERYTHEMATOSUS
     Route: 042
     Dates: start: 201611, end: 2016
  3. METHYLPREDNISOLONE. [Suspect]
     Active Substance: METHYLPREDNISOLONE
     Indication: NEUROMYELITIS OPTICA SPECTRUM DISORDER
     Route: 042
     Dates: start: 2016, end: 2016
  4. METHYLPREDNISOLONE. [Suspect]
     Active Substance: METHYLPREDNISOLONE
     Indication: SYSTEMIC LUPUS ERYTHEMATOSUS
     Route: 042
     Dates: start: 201611, end: 2016
  5. PREDNISOLONE. [Suspect]
     Active Substance: PREDNISOLONE
     Indication: NEUROMYELITIS OPTICA SPECTRUM DISORDER
     Route: 048
     Dates: start: 201603, end: 201604
  6. CYCLOPHOSPHAMIDE. [Suspect]
     Active Substance: CYCLOPHOSPHAMIDE
     Dosage: BETWEEN DEC/2016-MAY/2017
     Route: 042
  7. AZATHIOPRINE. [Suspect]
     Active Substance: AZATHIOPRINE
     Indication: SYSTEMIC LUPUS ERYTHEMATOSUS
     Dosage: MONTHLY DOSE: 1500 MG.
     Route: 048
     Dates: start: 201704
  8. METHYLPREDNISOLONE. [Suspect]
     Active Substance: METHYLPREDNISOLONE
     Dosage: BETWEEN DEC/2016-MAY/2017; MONTHLY PULSE THERAPY
     Route: 042
  9. MEDROL [Suspect]
     Active Substance: METHYLPREDNISOLONE
     Indication: SYSTEMIC LUPUS ERYTHEMATOSUS
     Dosage: TOTAL MONTHLY DOSE: 350 MG
     Route: 065
     Dates: start: 201612, end: 201705

REACTIONS (12)
  - Escherichia infection [Unknown]
  - Acute psychosis [Unknown]
  - Cushing^s syndrome [Unknown]
  - Decubitus ulcer [Unknown]
  - Pyelonephritis [Unknown]
  - Candida infection [Unknown]
  - Staphylococcal infection [Unknown]
  - Pseudomonas infection [Unknown]
  - Enterobacter infection [Unknown]
  - Sepsis [Unknown]
  - Urosepsis [Unknown]
  - Acinetobacter infection [Unknown]
